FAERS Safety Report 10999941 (Version 1)
Quarter: 2015Q2

REPORT INFORMATION
  Report Type: Spontaneous
  Country: US (occurrence: US)
  Receive Date: 20150408
  Receipt Date: 20150408
  Transmission Date: 20150821
  Serious: No
  Sender: FDA-Public Use
  Company Number: US-SA-2014SA076144

PATIENT
  Sex: Male
  Weight: 13.6 kg

DRUGS (1)
  1. ALLEGRA [Suspect]
     Active Substance: FEXOFENADINE HYDROCHLORIDE
     Indication: PRODUCT USED FOR UNKNOWN INDICATION
     Dosage: 1 TSP OF ALLEGRA CHILDREN^S SUSPENSION TWICE A DAY DOSE:1 TEASPOON(S)
     Route: 048

REACTIONS (1)
  - Diarrhoea [Unknown]
